FAERS Safety Report 10111925 (Version 13)
Quarter: 2015Q3

REPORT INFORMATION
  Report Type: Report from Study
  Country: CA (occurrence: CA)
  Receive Date: 20140425
  Receipt Date: 20150911
  Transmission Date: 20151125
  Serious: Yes (Death, Hospitalization, Other)
  Sender: FDA-Public Use
  Company Number: PHHY2013CA085932

PATIENT
  Age: 76 Year
  Sex: Female

DRUGS (8)
  1. SANDOSTATIN [Suspect]
     Active Substance: OCTREOTIDE ACETATE
     Indication: NEUROENDOCRINE TUMOUR
     Dosage: 50 UG, ONCE/SINGLE (TEST DOSE)
     Route: 058
     Dates: start: 20130627, end: 20130627
  2. SANDOSTATIN LAR DEPOT [Suspect]
     Active Substance: OCTREOTIDE ACETATE
     Indication: NEUROENDOCRINE TUMOUR
     Dosage: 30 MG, QMO (EVERY 4 WEEKS)
     Route: 030
     Dates: start: 20130709
  3. LUTETIUM (LU 177) [Concomitant]
     Active Substance: LUTETIUM LU-177
     Indication: PRODUCT USED FOR UNKNOWN INDICATION
     Dosage: UNK
     Route: 065
  4. HYDROCHLOROTHIAZIDE. [Concomitant]
     Active Substance: HYDROCHLOROTHIAZIDE
     Indication: PRODUCT USED FOR UNKNOWN INDICATION
     Dosage: 25 MG, UNK
     Route: 065
  5. HYDROCHLOROTHIAZIDE. [Concomitant]
     Active Substance: HYDROCHLOROTHIAZIDE
     Dosage: 0.5 DF, UNK
     Route: 065
  6. VALSARTAN. [Suspect]
     Active Substance: VALSARTAN
     Indication: HYPERTENSION
     Route: 048
     Dates: end: 20150615
  7. LUTETIUM (LU 177) [Concomitant]
     Active Substance: LUTETIUM LU-177
     Dosage: UNK
     Route: 065
     Dates: start: 20141007
  8. CALCIUM [Concomitant]
     Active Substance: CALCIUM
     Indication: PRODUCT USED FOR UNKNOWN INDICATION
     Route: 065

REACTIONS (57)
  - Chest discomfort [Recovering/Resolving]
  - Tongue discolouration [Unknown]
  - Fluid retention [Unknown]
  - Asthenia [Unknown]
  - Abdominal distension [Unknown]
  - Mental impairment [Unknown]
  - Musculoskeletal pain [Recovering/Resolving]
  - Glossodynia [Unknown]
  - Abdominal discomfort [Unknown]
  - Movement disorder [Unknown]
  - Emotional distress [Unknown]
  - Eating disorder [Unknown]
  - Lip dry [Unknown]
  - Oedema [Unknown]
  - Skin induration [Unknown]
  - Erythema [Unknown]
  - Rash pruritic [Unknown]
  - Death [Fatal]
  - Balance disorder [Unknown]
  - Arthralgia [Recovering/Resolving]
  - Blood pressure systolic increased [Unknown]
  - Laryngitis [Unknown]
  - Blood pressure decreased [Unknown]
  - Frustration [Unknown]
  - Crystal arthropathy [Unknown]
  - Rash erythematous [Unknown]
  - Muscle strain [Unknown]
  - Apathy [Unknown]
  - Oropharyngeal pain [Unknown]
  - Cough [Unknown]
  - Weight decreased [Unknown]
  - Dry mouth [Unknown]
  - Decreased appetite [Unknown]
  - Sluggishness [Unknown]
  - Bowel movement irregularity [Unknown]
  - Abdominal pain upper [Not Recovered/Not Resolved]
  - Fatigue [Not Recovered/Not Resolved]
  - Abdominal pain [Recovering/Resolving]
  - Heart rate increased [Unknown]
  - Vertigo [Unknown]
  - Urinary tract infection [Unknown]
  - Chest pain [Unknown]
  - Anxiety [Unknown]
  - Musculoskeletal chest pain [Unknown]
  - Crying [Unknown]
  - Stress [Unknown]
  - Constipation [Unknown]
  - Gout [Unknown]
  - Umbilical hernia [Unknown]
  - Incontinence [Unknown]
  - Feeling abnormal [Unknown]
  - Pain [Unknown]
  - Paraesthesia [Unknown]
  - Productive cough [Unknown]
  - Memory impairment [Unknown]
  - Dyspnoea [Unknown]
  - Nausea [Unknown]

NARRATIVE: CASE EVENT DATE: 20140613
